FAERS Safety Report 5090869-2 (Version None)
Quarter: 2006Q3

REPORT INFORMATION
  Report Type: 
  Country: None (occurrence: None)
  Receive Date: 20060823
  Receipt Date: 20060811
  Transmission Date: 20061208
  Serious: Yes (Hospitalization)
  Sender: FDA-Public Use
  Company Number: 2006099298

PATIENT
  Age: 63 Year
  Sex: Female

DRUGS (13)
  1. CYTOTEC [Suspect]
     Indication: ANGINA PECTORIS
     Dosage: 400 MCG (200 MCG, 2 IN 1 D), ORAL
     Route: 048
     Dates: start: 20060728, end: 20060807
  2. ASPIRIN [Suspect]
     Indication: ANGINA PECTORIS
     Dosage: 200 MG (100 MG, 2 IN 1 D), ORAL
     Route: 048
     Dates: start: 20060728, end: 20060805
  3. TICLOPIDINE HCL [Suspect]
     Indication: ANGINA PECTORIS
     Dosage: 200 MG (100 MG, 1 IN 1 D), ORAL
     Route: 048
     Dates: start: 20060728, end: 20060805
  4. PRAVASTATIN [Suspect]
     Indication: ANGINA PECTORIS
     Dosage: 10 MG (10 MG, 1 IN 1 D), ORAL
     Route: 048
     Dates: start: 20060731, end: 20060807
  5. BEZATOL - SLOW RELEASE (BEZAFIBRATE) [Concomitant]
  6. TRAZODONE HCL [Concomitant]
  7. PAXIL [Concomitant]
  8. ETHYL LOFLAZEPATE (ETHYL LOFLAZEPATE) [Concomitant]
  9. ALLELOCK (OLOPATADINE HYDROCHLORIDE) [Concomitant]
  10. MUCOSTA (REBAMIPIDE) [Concomitant]
  11. ALUMINUM HYDROXIDE AND MAGNESIUM TRISILICATE [Concomitant]
  12. BROTIZOLAM (BROTIZOLAM) [Concomitant]
  13. FLUNITRAZEPAM (FLUNITRAZEPAM) [Concomitant]

REACTIONS (4)
  - ERYTHEMA MULTIFORME [None]
  - MALAISE [None]
  - ORAL INTAKE REDUCED [None]
  - STOMACH DISCOMFORT [None]
